FAERS Safety Report 8783144 (Version 1)
Quarter: 2012Q4

REPORT INFORMATION
  Report Type: 
  Country: US (occurrence: US)
  Receive Date: 20120913
  Receipt Date: 20120913
  Transmission Date: 20130627
  Serious: No
  Sender: FDA-Public Use
  Company Number: US-ASTRAZENECA-2012SE69168

PATIENT
  Age: 28 Year
  Sex: Male
  Weight: 106.6 kg

DRUGS (5)
  1. NEXIUM [Suspect]
     Indication: GASTROOESOPHAGEAL REFLUX DISEASE
     Route: 048
     Dates: start: 2012
  2. NEXIUM [Suspect]
     Indication: GASTROOESOPHAGEAL REFLUX DISEASE
     Route: 048
     Dates: start: 2012
  3. SEROQUEL XR [Suspect]
     Indication: BIPOLAR DISORDER
     Route: 048
     Dates: start: 2012
  4. LITHIUM [Concomitant]
     Indication: BIPOLAR DISORDER
  5. LAMICTAL ODT [Concomitant]

REACTIONS (6)
  - Hot flush [Not Recovered/Not Resolved]
  - Gastrooesophageal reflux disease [Unknown]
  - Dehydration [Unknown]
  - Abdominal infection [Unknown]
  - Nausea [Not Recovered/Not Resolved]
  - Vomiting [Unknown]
